FAERS Safety Report 7928921-3 (Version None)
Quarter: 2011Q4

REPORT INFORMATION
  Report Type: 
  Country: None (occurrence: None)
  Receive Date: 20111118
  Receipt Date: 20111117
  Transmission Date: 20120403
  Serious: Yes (Hospitalization)
  Sender: FDA-Public Use
  Company Number: BE-ROCHE-1011149

PATIENT
  Weight: 78 kg

DRUGS (4)
  1. LIPITOR [Concomitant]
     Indication: HYPERLIPIDAEMIA
     Route: 048
  2. DOCETAXEL [Suspect]
     Indication: BREAST CANCER
     Dosage: LAST DATE PRIOR TO SAE:22 AUG 2011
     Route: 042
     Dates: start: 20110509
  3. XELODA [Suspect]
     Indication: BREAST CANCER
     Dosage: LAST DATE PRIOR TO SAE:22 AUG 2011
     Dates: start: 20110509
  4. ATENOLOL [Concomitant]
     Indication: HYPERTENSION
     Route: 048

REACTIONS (1)
  - SEROMA [None]
